FAERS Safety Report 16941031 (Version 1)
Quarter: 2019Q4

REPORT INFORMATION
  Report Type: Spontaneous
  Country: US (occurrence: US)
  Receive Date: 20191019
  Receipt Date: 20191019
  Transmission Date: 20200122
  Serious: Yes (Disabling)
  Sender: FDA-Public Use
  Company Number: None

PATIENT
  Age: 34 Year
  Sex: Female
  Weight: 69.75 kg

DRUGS (8)
  1. LEVOFLOXACIN. [Suspect]
     Active Substance: LEVOFLOXACIN
     Indication: STREPTOCOCCAL INFECTION
     Route: 048
     Dates: start: 20121101, end: 20121115
  2. CYMBALTA [Concomitant]
     Active Substance: DULOXETINE HYDROCHLORIDE
  3. CIPROFLOXACIN. [Suspect]
     Active Substance: CIPROFLOXACIN
     Indication: DIARRHOEA INFECTIOUS
     Route: 048
     Dates: start: 20100610, end: 20100617
  4. GABAPENTIN. [Concomitant]
     Active Substance: GABAPENTIN
  5. FEXERIL [Concomitant]
  6. KLONOPIN [Concomitant]
     Active Substance: CLONAZEPAM
  7. CIPROFLOXACIN. [Suspect]
     Active Substance: CIPROFLOXACIN
     Indication: FOOD POISONING
     Route: 048
     Dates: start: 20100610, end: 20100617
  8. MESALAMINE. [Concomitant]
     Active Substance: MESALAMINE

REACTIONS (6)
  - Hypoaesthesia [None]
  - Paraesthesia [None]
  - Myalgia [None]
  - Muscle tightness [None]
  - Tendon pain [None]
  - Balance disorder [None]

NARRATIVE: CASE EVENT DATE: 20121101
